FAERS Safety Report 12505480 (Version 2)
Quarter: 2017Q3

REPORT INFORMATION
  Report Type: Spontaneous
  Country: FR (occurrence: FR)
  Receive Date: 20160628
  Receipt Date: 20170822
  Transmission Date: 20171127
  Serious: Yes (Life-Threatening, Hospitalization, Other)
  Sender: FDA-Public Use
  Company Number: FR-JNJFOC-20160307548

PATIENT
  Age: 55 Year
  Sex: Female

DRUGS (10)
  1. RISPERDAL CONSTA [Suspect]
     Active Substance: RISPERIDONE
     Indication: PSYCHOTIC DISORDER
     Route: 030
     Dates: end: 201212
  2. RISPERDAL CONSTA [Suspect]
     Active Substance: RISPERIDONE
     Indication: PSYCHOTIC DISORDER
     Route: 030
     Dates: start: 20130104, end: 201301
  3. SEROPLEX [Interacting]
     Active Substance: ESCITALOPRAM OXALATE
     Indication: PSYCHOTIC DISORDER
     Route: 065
     Dates: end: 20130124
  4. SERESTA [Suspect]
     Active Substance: OXAZEPAM
     Indication: PSYCHOTIC DISORDER
     Route: 065
     Dates: start: 201210, end: 201212
  5. RISPERDAL CONSTA [Suspect]
     Active Substance: RISPERIDONE
     Indication: AGITATION
     Route: 030
     Dates: end: 201212
  6. RISPERDAL CONSTA [Suspect]
     Active Substance: RISPERIDONE
     Indication: AGITATION
     Route: 030
     Dates: start: 20130104, end: 201301
  7. LOXAPINE. [Suspect]
     Active Substance: LOXAPINE
     Indication: PSYCHOTIC DISORDER
     Route: 065
     Dates: start: 20130103, end: 20130118
  8. SEROPLEX [Interacting]
     Active Substance: ESCITALOPRAM OXALATE
     Indication: PSYCHOTIC DISORDER
     Route: 065
     Dates: end: 201212
  9. CLOZAPINE. [Suspect]
     Active Substance: CLOZAPINE
     Indication: PSYCHOTIC DISORDER
     Route: 065
     Dates: start: 20130206, end: 201302
  10. THERALENE [Suspect]
     Active Substance: TRIMEPRAZINE
     Indication: PSYCHOTIC DISORDER
     Dosage: 20 DROPS AT NIGHT IF NECESSARY
     Route: 065

REACTIONS (7)
  - Apnoea [Recovering/Resolving]
  - Drug level increased [Unknown]
  - Drug interaction [Recovering/Resolving]
  - Coma [Recovered/Resolved]
  - Status epilepticus [Recovering/Resolving]
  - Myoclonus [Recovering/Resolving]
  - Neuroleptic malignant syndrome [Recovering/Resolving]

NARRATIVE: CASE EVENT DATE: 201212
